FAERS Safety Report 5835628-5 (Version None)
Quarter: 2008Q3

REPORT INFORMATION
  Report Type: 
  Country: None (occurrence: None)
  Receive Date: 20080806
  Receipt Date: 20080806
  Transmission Date: 20090109
  Serious: Yes (Hospitalization)
  Sender: FDA-Public Use
  Company Number: PHEH1999US05100

PATIENT
  Sex: Male
  Weight: 88.4 kg

DRUGS (8)
  1. MYCOPHENOLIC ACID ERL+ [Suspect]
     Dosage: 720 MG, BID
     Route: 048
     Dates: start: 19991006
  2. NEORAL [Concomitant]
  3. MYCELEX [Concomitant]
  4. MULTI-VITAMINS [Concomitant]
  5. BACTRIM [Concomitant]
  6. ZANTAC [Concomitant]
  7. PREDNISONE TAB [Concomitant]
  8. ACYCLOVIR [Concomitant]

REACTIONS (3)
  - DIARRHOEA [None]
  - NAUSEA [None]
  - VOMITING [None]
